FAERS Safety Report 5092989-5 (Version None)
Quarter: 2006Q3

REPORT INFORMATION
  Report Type: 
  Country: None (occurrence: None)
  Receive Date: 20060830
  Receipt Date: 20060821
  Transmission Date: 20061208
  Serious: Yes (Hospitalization)
  Sender: FDA-Public Use
  Company Number: FR-GLAXOSMITHKLINE-B0434787A

PATIENT
  Age: 55 Year
  Sex: Female
  Weight: 68 kg

DRUGS (9)
  1. DEROXAT [Suspect]
     Indication: DEPRESSION
     Dosage: 20MG PER DAY
     Route: 048
     Dates: start: 20060717
  2. MOPRAL [Suspect]
     Indication: GASTROINTESTINAL HAEMORRHAGE
     Dates: start: 20060717, end: 20060720
  3. LOVENOX [Suspect]
     Indication: THROMBOSIS PROPHYLAXIS
     Dosage: 2U3 PER DAY
     Route: 058
     Dates: start: 20060717
  4. CARDENSIEL [Suspect]
     Indication: MITRAL VALVE INCOMPETENCE
     Dosage: 1.25MG PER DAY
     Route: 048
     Dates: end: 20060705
  5. DIGOXIN [Suspect]
     Indication: MITRAL VALVE INCOMPETENCE
     Dosage: .25MG PER DAY
     Route: 048
     Dates: end: 20060705
  6. EFFEXOR [Suspect]
     Indication: DEPRESSION
     Route: 048
     Dates: end: 20060705
  7. XANAX [Suspect]
     Dates: start: 20060717
  8. IMOVANE [Suspect]
     Dates: start: 20060717
  9. DAFALGAN CODEINE [Suspect]
     Dates: start: 20060717

REACTIONS (3)
  - ANAEMIA [None]
  - BLOOD IRON DECREASED [None]
  - THROMBOCYTOPENIA [None]
